FAERS Safety Report 25241078 (Version 4)
Quarter: 2025Q4

REPORT INFORMATION
  Report Type: Spontaneous
  Country: US (occurrence: US)
  Receive Date: 20250425
  Receipt Date: 20251221
  Transmission Date: 20260117
  Serious: Yes (Other)
  Sender: BLUEPRINT MEDICINES
  Company Number: US-Blueprint Medicines Corporation-2025-AER-00827

PATIENT
  Age: 94 Year
  Sex: Female

DRUGS (3)
  1. AYVAKIT [Suspect]
     Active Substance: AVAPRITINIB
     Indication: Systemic mastocytosis
     Route: 065
     Dates: start: 20250109
  2. AYVAKIT [Suspect]
     Active Substance: AVAPRITINIB
     Route: 065
     Dates: start: 20250109
  3. IRON [Suspect]
     Active Substance: IRON
     Indication: Product used for unknown indication
     Route: 065

REACTIONS (20)
  - Aortic valve incompetence [Unknown]
  - Respiratory distress [Recovered/Resolved]
  - Optic nerve cupping [Unknown]
  - Liver function test abnormal [Unknown]
  - Red blood cell count abnormal [Unknown]
  - Anxiety [Unknown]
  - Hypertension [Recovered/Resolved]
  - Urine output decreased [Unknown]
  - Respiratory rate increased [Recovered/Resolved]
  - Skin discolouration [Recovered/Resolved]
  - Periorbital oedema [Unknown]
  - Memory impairment [Unknown]
  - Abdominal distension [Recovering/Resolving]
  - Flatulence [Unknown]
  - Dysphonia [Recovering/Resolving]
  - Red blood cell count decreased [Not Recovered/Not Resolved]
  - Platelet count decreased [Not Recovered/Not Resolved]
  - Constipation [Unknown]
  - Diarrhoea [Unknown]
  - Hearing aid user [Unknown]
